FAERS Safety Report 9404314 (Version 1)
Quarter: 2013Q3

REPORT INFORMATION
  Report Type: Spontaneous
  Country: US (occurrence: None)
  Receive Date: 20130716
  Receipt Date: 20130716
  Transmission Date: 20140515
  Serious: Yes (Hospitalization)
  Sender: FDA-Public Use
  Company Number: None

PATIENT
  Age: 62 Year
  Sex: Male
  Weight: 80.83 kg

DRUGS (2)
  1. LENALIDOMIDE [Suspect]
     Indication: NON-HODGKIN^S LYMPHOMA
     Dosage: Q21DAYS
     Route: 048
     Dates: start: 20110603
  2. ASPIRIN [Concomitant]

REACTIONS (1)
  - Deep vein thrombosis [None]
